FAERS Safety Report 15724202 (Version 7)
Quarter: 2022Q1

REPORT INFORMATION
  Report Type: Spontaneous
  Country: US (occurrence: US)
  Receive Date: 20181214
  Receipt Date: 20220218
  Transmission Date: 20220424
  Serious: Yes (Hospitalization)
  Sender: FDA-Public Use
  Company Number: US-PFIZER INC-2017401179

PATIENT
  Age: 58 Year
  Sex: Female

DRUGS (6)
  1. SOMAVERT [Suspect]
     Active Substance: PEGVISOMANT
     Indication: Acromegaly
     Dosage: 40 MG
     Dates: start: 2004
  2. SOMAVERT [Suspect]
     Active Substance: PEGVISOMANT
     Dosage: 15 MG, DAILY
     Route: 058
     Dates: start: 200410, end: 200908
  3. SOMAVERT [Suspect]
     Active Substance: PEGVISOMANT
     Dosage: 30 MG, DAILY
     Route: 058
     Dates: start: 200410
  4. SOMAVERT [Suspect]
     Active Substance: PEGVISOMANT
     Dosage: 30 MG, DAILY
     Route: 058
     Dates: start: 20090804
  5. SANDOSTATIN [Concomitant]
     Active Substance: OCTREOTIDE ACETATE
     Indication: Blood growth hormone increased
     Dosage: UNK, WEEKLY
  6. MYCAPSSA [Concomitant]
     Active Substance: OCTREOTIDE
     Dosage: UNK

REACTIONS (7)
  - Blood growth hormone increased [Unknown]
  - Bone pain [Unknown]
  - Arthralgia [Unknown]
  - Insulin-like growth factor abnormal [Recovered/Resolved]
  - Nausea [Unknown]
  - COVID-19 [Recovering/Resolving]
  - Intentional dose omission [Unknown]

NARRATIVE: CASE EVENT DATE: 20220101
